FAERS Safety Report 5299179-1 (Version None)
Quarter: 2007Q2

REPORT INFORMATION
  Report Type: 
  Country: None (occurrence: None)
  Receive Date: 20070417
  Receipt Date: 20070413
  Transmission Date: 20071010
  Serious: Yes (Hospitalization)
  Sender: FDA-Public Use
  Company Number: AU-AVENTIS-200710855GDDC

PATIENT
  Age: 53 Year
  Sex: Female

DRUGS (6)
  1. LANTUS [Suspect]
     Route: 058
  2. IRBESARTAN [Concomitant]
     Indication: HYPERTENSION
     Route: 048
  3. ATORVASTATIN CALCIUM [Concomitant]
     Route: 048
  4. AROPAX [Concomitant]
     Indication: DEPRESSION
     Route: 048
  5. OROXINE [Concomitant]
     Indication: HYPOTHYROIDISM
     Route: 048
  6. INSULIN NOVORAPID [Concomitant]

REACTIONS (4)
  - CYSTITIS [None]
  - HYPOTENSION [None]
  - INJECTION SITE PAIN [None]
  - RENAL DISORDER [None]
